FAERS Safety Report 25570296 (Version 1)
Quarter: 2025Q3

REPORT INFORMATION
  Report Type: Spontaneous
  Country: JP (occurrence: JP)
  Receive Date: 20250717
  Receipt Date: 20250717
  Transmission Date: 20251020
  Serious: Yes (Other)
  Sender: JAZZ
  Company Number: JP-JAZZ PHARMACEUTICALS-2025-JP-017395

PATIENT
  Age: 70 Year
  Sex: Male

DRUGS (4)
  1. VYXEOS [Suspect]
     Active Substance: CYTARABINE\DAUNORUBICIN
     Indication: Acute myeloid leukaemia
  2. CYTARABINE [Suspect]
     Active Substance: CYTARABINE
     Indication: Acute myeloid leukaemia
  3. IDAMYCIN [Concomitant]
     Active Substance: IDARUBICIN HYDROCHLORIDE
     Indication: Acute myeloid leukaemia
  4. GRANULOCYTE COLONY-STIMULATING FACTOR NOS [Concomitant]
     Active Substance: GRANULOCYTE COLONY-STIMULATING FACTOR NOS
     Indication: Product used for unknown indication

REACTIONS (6)
  - Acute myeloid leukaemia recurrent [Unknown]
  - Systemic candida [Unknown]
  - Systemic candida [Unknown]
  - Stenotrophomonas bacteraemia [Unknown]
  - Cellulitis [Unknown]
  - Herpes simplex [Unknown]
